FAERS Safety Report 16314460 (Version 2)
Quarter: 2019Q2

REPORT INFORMATION
  Report Type: Report from Study
  Country: US (occurrence: US)
  Receive Date: 20190515
  Receipt Date: 20190606
  Transmission Date: 20190711
  Serious: Yes (Death, Life-Threatening, Hospitalization, Other)
  Sender: FDA-Public Use
  Company Number: US-ACTELION-A-NJ2019-189358

PATIENT
  Age: 61 Year
  Sex: Female

DRUGS (2)
  1. TADALAFIL. [Concomitant]
     Active Substance: TADALAFIL
  2. OPSUMIT [Suspect]
     Active Substance: MACITENTAN
     Indication: PULMONARY ARTERIAL HYPERTENSION
     Dosage: 10 MG, QD
     Route: 048
     Dates: start: 20181010, end: 20190501

REACTIONS (9)
  - Pulmonary arterial hypertension [Fatal]
  - Hypoxia [Recovered/Resolved with Sequelae]
  - Respiratory failure [Fatal]
  - Oxygen consumption increased [Unknown]
  - Dyspnoea [Fatal]
  - Pulmonary veno-occlusive disease [Fatal]
  - Scleroderma [Fatal]
  - Condition aggravated [Fatal]
  - Right ventricular failure [Fatal]

NARRATIVE: CASE EVENT DATE: 2019
